FAERS Safety Report 10197487 (Version 1)
Quarter: 2014Q2

REPORT INFORMATION
  Report Type: Spontaneous
  Country: US (occurrence: US)
  Receive Date: 20140527
  Receipt Date: 20140527
  Transmission Date: 20141212
  Serious: No
  Sender: FDA-Public Use
  Company Number: US-NOVEN-14US008869

PATIENT
  Age: 48 Year
  Sex: Female

DRUGS (3)
  1. MINIVELLE [Suspect]
     Indication: NIGHT SWEATS
     Dosage: 0.1 MG, Q 3DAYS
     Route: 062
     Dates: start: 201308, end: 201402
  2. MINIVELLE [Suspect]
     Indication: MENOPAUSE
     Dosage: 0.1 MG, 2/WK
     Route: 062
     Dates: start: 201308, end: 201310
  3. PROSOM [Concomitant]

REACTIONS (5)
  - Malaise [Not Recovered/Not Resolved]
  - Feeling abnormal [Not Recovered/Not Resolved]
  - Mood swings [Not Recovered/Not Resolved]
  - Hot flush [Not Recovered/Not Resolved]
  - Drug ineffective [Not Recovered/Not Resolved]
